FAERS Safety Report 24418776 (Version 1)
Quarter: 2024Q4

REPORT INFORMATION
  Report Type: Report from Study
  Country: US (occurrence: US)
  Receive Date: 20241009
  Receipt Date: 20241009
  Transmission Date: 20250115
  Serious: Yes (Other)
  Sender: ABBVIE
  Company Number: US-ABBVIE-5884367

PATIENT
  Sex: Male

DRUGS (2)
  1. HUMIRA [Suspect]
     Active Substance: ADALIMUMAB
     Indication: Rheumatoid arthritis
     Dosage: LAST ADMINISTRATION DATE 2024
     Route: 058
     Dates: start: 20240201
  2. HUMIRA [Suspect]
     Active Substance: ADALIMUMAB
     Route: 058
     Dates: start: 202406

REACTIONS (8)
  - Nephrolithiasis [Recovering/Resolving]
  - Pain in extremity [Not Recovered/Not Resolved]
  - Discomfort [Unknown]
  - Therapeutic product effect decreased [Unknown]
  - Peripheral venous disease [Unknown]
  - Rash macular [Unknown]
  - Venous perforation [Unknown]
  - Hyperaesthesia teeth [Unknown]

NARRATIVE: CASE EVENT DATE: 20240101
